FAERS Safety Report 20228706 (Version 1)
Quarter: 2021Q4

REPORT INFORMATION
  Report Type: Spontaneous
  Country: US (occurrence: US)
  Receive Date: 20211225
  Receipt Date: 20211225
  Transmission Date: 20220303
  Serious: No
  Sender: FDA-Public Use
  Company Number: US-SA-SAC20211221000748

PATIENT
  Sex: Female

DRUGS (1)
  1. FABRAZYME [Suspect]
     Active Substance: AGALSIDASE BETA
     Indication: Fabry^s disease
     Dosage: INFUSE 80 MG INTRAVENOUSLY EVERY 2 WEEKS IN 250 ML NORMAL SALINE (TOTAL VOLUME). 70MG OF 35MG FABRAZ
     Route: 042
     Dates: start: 202004

REACTIONS (2)
  - Nausea [Unknown]
  - Pain [Recovered/Resolved]
